FAERS Safety Report 10497913 (Version 2)
Quarter: 2014Q4

REPORT INFORMATION
  Report Type: Report from Study
  Country: US (occurrence: US)
  Receive Date: 20141006
  Receipt Date: 20141020
  Transmission Date: 20150528
  Serious: Yes (Other)
  Sender: FDA-Public Use
  Company Number: US-AMGEN INC.-USASP2014074751

PATIENT
  Age: 45 Year
  Sex: Male

DRUGS (1)
  1. ENBREL [Suspect]
     Active Substance: ETANERCEPT
     Indication: PSORIATIC ARTHROPATHY
     Dosage: 50 MG, QWK
     Route: 065
     Dates: start: 20140908, end: 201410

REACTIONS (7)
  - Adverse drug reaction [Unknown]
  - Respiratory tract infection [Not Recovered/Not Resolved]
  - Injection site erythema [Unknown]
  - Injection site reaction [Not Recovered/Not Resolved]
  - Injection site warmth [Unknown]
  - Fatigue [Not Recovered/Not Resolved]
  - Injection site inflammation [Unknown]

NARRATIVE: CASE EVENT DATE: 201409
